FAERS Safety Report 9308867 (Version 1)
Quarter: 2013Q2

REPORT INFORMATION
  Report Type: Spontaneous
  Country: SE (occurrence: SE)
  Receive Date: 20130524
  Receipt Date: 20130524
  Transmission Date: 20140414
  Serious: Yes (Hospitalization, Other)
  Sender: FDA-Public Use
  Company Number: SE-PFIZER INC-2013155135

PATIENT
  Age: 57 Year
  Sex: Female

DRUGS (8)
  1. SALAZOPYRIN [Suspect]
     Indication: PSORIATIC ARTHROPATHY
     Dosage: 500 MG, 2X/DAY
     Route: 048
     Dates: end: 20130325
  2. SALAZOPYRIN [Suspect]
     Dosage: 1 G, 2X/DAY
     Route: 048
     Dates: end: 20130325
  3. OMEPRAZOL [Concomitant]
     Dosage: UNK
  4. AMLODIPINE ACCORD [Concomitant]
     Dosage: UNK
  5. FOLACIN [Concomitant]
     Dosage: UNK
  6. ALVEDON [Concomitant]
     Dosage: UNK
  7. PREDNISOLON [Concomitant]
     Dosage: UNK
  8. TRADOLAN [Concomitant]
     Dosage: UNK

REACTIONS (6)
  - Pyrexia [Recovered/Resolved]
  - Chest pain [Recovered/Resolved]
  - Pain [Unknown]
  - Nausea [Recovered/Resolved]
  - Vomiting [Recovered/Resolved]
  - Coronary artery disease [Unknown]
